FAERS Safety Report 6453976-5 (Version None)
Quarter: 2009Q4

REPORT INFORMATION
  Report Type: 
  Country: None (occurrence: None)
  Receive Date: 20091124
  Receipt Date: 20091116
  Transmission Date: 20100525
  Serious: Yes (Hospitalization, Other)
  Sender: FDA-Public Use
  Company Number: FR-PFIZER INC-2009297872

PATIENT
  Age: 84 Year
  Sex: Female

DRUGS (5)
  1. ZOLOFT [Suspect]
     Dosage: 25 MG, 1X/DAY
     Route: 048
     Dates: end: 20080429
  2. GLUCOPHAGE [Suspect]
     Indication: TYPE 2 DIABETES MELLITUS
     Dosage: UNK
     Route: 048
     Dates: end: 20080429
  3. AMLOR [Concomitant]
     Dosage: 1 DF, 1X/DAY
     Route: 048
     Dates: end: 20080429
  4. ALDACTONE [Concomitant]
     Dosage: 1 DF, 1X/DAY
     Route: 048
     Dates: end: 20080429
  5. PREVISCAN [Concomitant]
     Dosage: 1/4 - 1/2 ALTERNATE DAY
     Route: 048
     Dates: end: 20080429

REACTIONS (4)
  - FACIAL BONES FRACTURE [None]
  - FALL [None]
  - INAPPROPRIATE ANTIDIURETIC HORMONE SECRETION [None]
  - OVERDOSE [None]
